FAERS Safety Report 12733410 (Version 2)
Quarter: 2016Q4

REPORT INFORMATION
  Report Type: Spontaneous
  Country: US (occurrence: US)
  Receive Date: 20160912
  Receipt Date: 20161104
  Transmission Date: 20170207
  Serious: Yes (Hospitalization)
  Sender: FDA-Public Use
  Company Number: US-JNJFOC-20160806373

PATIENT
  Age: 86 Year
  Sex: Male

DRUGS (3)
  1. XARELTO [Suspect]
     Active Substance: RIVAROXABAN
     Indication: CEREBROVASCULAR ACCIDENT PROPHYLAXIS
     Dosage: WITH DINNER
     Route: 048
     Dates: start: 20150430, end: 20150628
  2. XARELTO [Suspect]
     Active Substance: RIVAROXABAN
     Indication: ATRIAL FIBRILLATION
     Dosage: WITH DINNER
     Route: 048
     Dates: start: 20150430, end: 20150628
  3. XARELTO [Suspect]
     Active Substance: RIVAROXABAN
     Indication: THROMBOSIS PROPHYLAXIS
     Dosage: WITH DINNER
     Route: 048
     Dates: start: 20150430, end: 20150628

REACTIONS (1)
  - Epistaxis [Recovering/Resolving]

NARRATIVE: CASE EVENT DATE: 20150628
